FAERS Safety Report 16179782 (Version 1)
Quarter: 2019Q2

REPORT INFORMATION
  Report Type: Spontaneous
  Country: US (occurrence: US)
  Receive Date: 20190307
  Receipt Date: 20190307
  Transmission Date: 20190711
  Serious: Yes (Hospitalization)
  Sender: FDA-Public Use
  Company Number: None

PATIENT
  Age: 83 Year
  Sex: Male
  Weight: 64.5 kg

DRUGS (2)
  1. DASATINIB 50 MG [Suspect]
     Active Substance: DASATINIB
     Indication: NON-SMALL CELL LUNG CANCER
     Route: 048
     Dates: start: 20161207
  2. OSIMERTINIB 80 MG [Suspect]
     Active Substance: OSIMERTINIB
     Indication: NON-SMALL CELL LUNG CANCER
     Route: 048
     Dates: start: 20161207

REACTIONS (8)
  - Peripheral swelling [None]
  - Headache [None]
  - Pain [None]
  - Chills [None]
  - Nodule [None]
  - Mobility decreased [None]
  - Skin tightness [None]
  - Thrombosis [None]

NARRATIVE: CASE EVENT DATE: 20190306
